FAERS Safety Report 21006026 (Version 1)
Quarter: 2022Q2

REPORT INFORMATION
  Report Type: Report from Study
  Country: US (occurrence: US)
  Receive Date: 20220624
  Receipt Date: 20220624
  Transmission Date: 20220721
  Serious: Yes (Death)
  Sender: FDA-Public Use
  Company Number: US-UCBSA-2022034466

PATIENT
  Age: 85 Year
  Sex: Female

DRUGS (1)
  1. LACOSAMIDE [Suspect]
     Active Substance: LACOSAMIDE
     Indication: Seizure
     Dosage: 50MG 1 TABLET QAM, 1 AT NOON AND 2 QHS
     Dates: end: 20220605

REACTIONS (2)
  - Myocardial infarction [Fatal]
  - Product use issue [Unknown]

NARRATIVE: CASE EVENT DATE: 20220605
